FAERS Safety Report 7041834-7 (Version None)
Quarter: 2010Q4

REPORT INFORMATION
  Report Type: 
  Country: None (occurrence: None)
  Receive Date: 20101013
  Receipt Date: 20101005
  Transmission Date: 20110411
  Serious: Yes (Other)
  Sender: FDA-Public Use
  Company Number: JP-ELI_LILLY_AND_COMPANY-JP200904001853

PATIENT
  Age: 63 Year
  Sex: Male

DRUGS (3)
  1. GEMZAR [Suspect]
     Indication: BILE DUCT CANCER RECURRENT
     Dosage: 1000 MG/M2, OTHER
     Route: 042
     Dates: start: 20080601, end: 20080101
  2. GEMZAR [Suspect]
     Dosage: 800 MG/M2, OTHER
     Route: 042
     Dates: start: 20080101, end: 20090701
  3. TS 1 /JPN/ [Concomitant]
     Indication: BILE DUCT CANCER RECURRENT
     Dosage: 60 MG/M2, OTHER
     Route: 048
     Dates: start: 20080601, end: 20090701

REACTIONS (7)
  - GENERALISED ERYTHEMA [None]
  - HYPERBILIRUBINAEMIA [None]
  - MALAISE [None]
  - MALIGNANT ASCITES [None]
  - PIGMENTATION DISORDER [None]
  - TUMOUR MARKER INCREASED [None]
  - WHITE BLOOD CELL COUNT DECREASED [None]
